FAERS Safety Report 6522301-3 (Version None)
Quarter: 2009Q4

REPORT INFORMATION
  Report Type: 
  Country: None (occurrence: None)
  Receive Date: 20091230
  Receipt Date: 20091222
  Transmission Date: 20100525
  Serious: Yes (Other)
  Sender: FDA-Public Use
  Company Number: A0836852A

PATIENT
  Sex: Female
  Weight: 73 kg

DRUGS (2)
  1. CLAVULIN [Suspect]
     Indication: DIVERTICULITIS
     Dosage: 1TAB TWICE PER DAY
     Route: 065
     Dates: start: 20091215
  2. FLAGYL [Concomitant]
     Dosage: 1TAB THREE TIMES PER DAY
     Dates: start: 20091201

REACTIONS (1)
  - MELAENA [None]
